FAERS Safety Report 9633351 (Version 2)
Quarter: 2013Q4

REPORT INFORMATION
  Report Type: Spontaneous
  Country: US (occurrence: US)
  Receive Date: 20131021
  Receipt Date: 20131127
  Transmission Date: 20140711
  Serious: No
  Sender: FDA-Public Use
  Company Number: US-ROXANE LABORATORIES, INC.-2013-RO-01688RO

PATIENT
  Sex: Male

DRUGS (1)
  1. FLUTICASONE [Suspect]
     Route: 045

REACTIONS (4)
  - Drug ineffective [Recovered/Resolved]
  - Ear congestion [Recovered/Resolved]
  - Rhinorrhoea [Recovered/Resolved]
  - Product quality issue [Recovered/Resolved]
